FAERS Safety Report 24867844 (Version 1)
Quarter: 2025Q1

REPORT INFORMATION
  Report Type: Spontaneous
  Country: US (occurrence: US)
  Receive Date: 20250121
  Receipt Date: 20250121
  Transmission Date: 20250409
  Serious: No
  Sender: DR REDDYS
  Company Number: US-DRL-USA-USA/2025/01/000781

PATIENT
  Age: 19 Year
  Sex: Female

DRUGS (7)
  1. LIDOCAINE [Suspect]
     Active Substance: LIDOCAINE
     Indication: Cholestatic pruritus
  2. COLESEVELAM [Suspect]
     Active Substance: COLESEVELAM
     Indication: Cholestatic pruritus
  3. URSODIOL [Concomitant]
     Active Substance: URSODIOL
     Indication: Cholestatic pruritus
  4. CHOLESTYRAMINE [Concomitant]
     Active Substance: CHOLESTYRAMINE
     Indication: Cholestatic pruritus
  5. SERTRALINE [Concomitant]
     Active Substance: SERTRALINE HYDROCHLORIDE
     Indication: Cholestatic pruritus
  6. NALTREXONE [Concomitant]
     Active Substance: NALTREXONE
     Indication: Cholestatic pruritus
  7. GABAPENTIN [Concomitant]
     Active Substance: GABAPENTIN
     Indication: Cholestatic pruritus

REACTIONS (1)
  - Drug ineffective for unapproved indication [Unknown]
